FAERS Safety Report 4471634-3 (Version None)
Quarter: 2004Q4

REPORT INFORMATION
  Report Type: 
  Country: None (occurrence: None)
  Receive Date: 20041012
  Receipt Date: 20041004
  Transmission Date: 20050328
  Serious: Yes (Life-Threatening)
  Sender: FDA-Public Use
  Company Number: DE-MERCK-0410DEU00091

PATIENT
  Age: 56 Year
  Sex: Male

DRUGS (1)
  1. VIOXX [Suspect]
     Indication: POLYARTHRITIS
     Route: 048
     Dates: start: 20040416, end: 20040823

REACTIONS (1)
  - COLITIS ULCERATIVE [None]
